FAERS Safety Report 4877619-7 (Version None)
Quarter: 2006Q1

REPORT INFORMATION
  Report Type: 
  Country: None (occurrence: None)
  Receive Date: 20060109
  Receipt Date: 20051228
  Transmission Date: 20060701
  Serious: Yes (Hospitalization, Other)
  Sender: FDA-Public Use
  Company Number: USA-2005-0020848

PATIENT
  Age: 60 Year
  Sex: Female

DRUGS (22)
  1. OXYCONTIN [Suspect]
     Indication: PAIN
  2. OXYCODONE HCL [Concomitant]
  3. MORPHINE SULFATE [Concomitant]
  4. THEO-DUR [Concomitant]
  5. AMBIEN [Concomitant]
  6. ALBUTEROL [Concomitant]
  7. PREDNISONE [Concomitant]
  8. SKELAXIN [Concomitant]
  9. RESTORIL [Concomitant]
  10. SOLU-MEDROL [Concomitant]
  11. ZANAFLEX [Concomitant]
  12. CELEXA [Concomitant]
  13. ATIVAN [Concomitant]
  14. DILAUDID [Concomitant]
  15. VERSED [Concomitant]
  16. DEMEROL [Concomitant]
  17. BEXTRA [Concomitant]
  18. LEVAQUIN [Concomitant]
  19. THEOPHYLLINE [Concomitant]
  20. AZMACORT [Concomitant]
  21. AMITRIPTYLINE (AMITRIPTYLINE) [Concomitant]
  22. STADON [Concomitant]

REACTIONS (38)
  - ABDOMINAL PAIN UPPER [None]
  - ARTHRALGIA [None]
  - BACK PAIN [None]
  - CHEST PAIN [None]
  - CHRONIC OBSTRUCTIVE PULMONARY DISEASE [None]
  - CONSTIPATION [None]
  - DEPRESSION [None]
  - DEVICE CONNECTION ISSUE [None]
  - DEVICE FAILURE [None]
  - DRUG DEPENDENCE [None]
  - DRUG TOLERANCE [None]
  - DRUG WITHDRAWAL SYNDROME [None]
  - ERYTHEMA [None]
  - FALL [None]
  - GANGLION [None]
  - GASTRITIS [None]
  - GROIN PAIN [None]
  - HAEMATURIA [None]
  - MALNUTRITION [None]
  - MASS [None]
  - MUSCLE SPASMS [None]
  - NICOTINE DEPENDENCE [None]
  - OBESITY [None]
  - OBSESSIVE-COMPULSIVE DISORDER [None]
  - OEDEMA PERIPHERAL [None]
  - ONYCHOLYSIS [None]
  - PAIN [None]
  - PAIN IN EXTREMITY [None]
  - PARANOIA [None]
  - RADICULAR PAIN [None]
  - RADIUS FRACTURE [None]
  - REFUSAL OF TREATMENT BY PATIENT [None]
  - RESPIRATORY DISTRESS [None]
  - SHOULDER PAIN [None]
  - SOFT TISSUE DISORDER [None]
  - STATUS ASTHMATICUS [None]
  - VISUAL DISTURBANCE [None]
  - WEIGHT DECREASED [None]
